FAERS Safety Report 20138799 (Version 5)
Quarter: 2022Q1

REPORT INFORMATION
  Report Type: Report from Study
  Country: CN (occurrence: CN)
  Receive Date: 20211202
  Receipt Date: 20220126
  Transmission Date: 20220423
  Serious: Yes (Hospitalization)
  Sender: FDA-Public Use
  Company Number: CN-NOVARTISPH-NVSC2021CN270608

PATIENT
  Age: 47 Year
  Sex: Female
  Weight: 87.5 kg

DRUGS (7)
  1. TYKERB [Suspect]
     Active Substance: LAPATINIB DITOSYLATE
     Indication: Breast cancer
     Dosage: 1250 MG, QD
     Route: 048
     Dates: start: 20211001, end: 20211111
  2. TYKERB [Suspect]
     Active Substance: LAPATINIB DITOSYLATE
     Dosage: 1250 MG, QD
     Route: 048
     Dates: start: 20211124, end: 20220113
  3. CAPECITABINE [Suspect]
     Active Substance: CAPECITABINE
     Indication: Product used for unknown indication
     Dosage: 3500 MG, BID
     Route: 048
     Dates: start: 20211001, end: 20211021
  4. CAPECITABINE [Suspect]
     Active Substance: CAPECITABINE
     Dosage: 4000 MG, BID
     Route: 048
     Dates: start: 20211022, end: 20211111
  5. CAPECITABINE [Suspect]
     Active Substance: CAPECITABINE
     Dosage: 3000 MG, BID
     Route: 048
     Dates: start: 20211224, end: 20220113
  6. INOSINE [Concomitant]
     Active Substance: INOSINE
     Indication: Product used for unknown indication
     Dosage: 400 MG, TID
     Route: 048
     Dates: start: 202106, end: 20211101
  7. INOSINE [Concomitant]
     Active Substance: INOSINE
     Dosage: 200 MG, TID
     Route: 048
     Dates: start: 20211102

REACTIONS (1)
  - Generalised oedema [Recovering/Resolving]

NARRATIVE: CASE EVENT DATE: 20211115
